FAERS Safety Report 14528494 (Version 1)
Quarter: 2018Q1

REPORT INFORMATION
  Report Type: Report from Study
  Country: US (occurrence: US)
  Receive Date: 20180214
  Receipt Date: 20180214
  Transmission Date: 20180509
  Serious: Yes (Other)
  Sender: FDA-Public Use
  Company Number: US-BEH-2018087694

PATIENT
  Sex: Male

DRUGS (1)
  1. HAEGARDA [Suspect]
     Active Substance: HUMAN C1-ESTERASE INHIBITOR
     Indication: HEREDITARY ANGIOEDEMA
     Dosage: UNK
     Route: 058
     Dates: start: 201709

REACTIONS (4)
  - Migraine [Recovered/Resolved]
  - Trismus [Recovered/Resolved]
  - Peripheral swelling [Recovered/Resolved]
  - Gingival swelling [Recovered/Resolved]

NARRATIVE: CASE EVENT DATE: 201709
